FAERS Safety Report 7479581-X (Version None)
Quarter: 2011Q2

REPORT INFORMATION
  Report Type: 
  Country: None (occurrence: None)
  Receive Date: 20110513
  Receipt Date: 20110506
  Transmission Date: 20111010
  Serious: Yes (Other)
  Sender: FDA-Public Use
  Company Number: FR-CEPHALON-2011002090

PATIENT
  Sex: Male

DRUGS (1)
  1. ACTIQ [Suspect]
     Indication: BACK PAIN
     Route: 002
     Dates: start: 20100101

REACTIONS (6)
  - VOMITING [None]
  - DEPENDENCE [None]
  - AGGRESSION [None]
  - DRUG PRESCRIBING ERROR [None]
  - MALAISE [None]
  - HYPERHIDROSIS [None]
